FAERS Safety Report 10144851 (Version 1)
Quarter: 2014Q2

REPORT INFORMATION
  Report Type: Spontaneous
  Country: US (occurrence: US)
  Receive Date: 20140430
  Receipt Date: 20140430
  Transmission Date: 20141212
  Serious: No
  Sender: FDA-Public Use
  Company Number: US-SANOFI-AVENTIS-2013SA059912

PATIENT
  Sex: Female

DRUGS (8)
  1. DEMEROL [Suspect]
  2. AMBIEN [Suspect]
  3. ADDERALL [Concomitant]
  4. ANUCORT-HC [Concomitant]
  5. DEXLANSOPRAZOLE [Concomitant]
  6. LORTAB [Concomitant]
  7. MAXALT /NET/ [Concomitant]
  8. ULTRAM [Concomitant]

REACTIONS (1)
  - Drug hypersensitivity [Unknown]
